FAERS Safety Report 9276392 (Version 1)
Quarter: 2013Q2

REPORT INFORMATION
  Report Type: Spontaneous
  Country: FR (occurrence: FR)
  Receive Date: 20130507
  Receipt Date: 20130507
  Transmission Date: 20140414
  Serious: Yes (Hospitalization, Other)
  Sender: FDA-Public Use
  Company Number: FR-ELI_LILLY_AND_COMPANY-FR201304008312

PATIENT
  Sex: Male

DRUGS (9)
  1. EFIENT [Suspect]
     Dosage: 10 MG, UNK
     Dates: end: 20130219
  2. KARDEGIC [Concomitant]
     Dosage: 75 MG, QD
  3. ATENOLOL [Concomitant]
     Dosage: 50 MG, UNK
  4. TIMOFEROL [Concomitant]
  5. AMLOR [Concomitant]
     Dosage: 10 MG, QD
  6. ATORVASTATIN [Concomitant]
     Dosage: 80 MG, QD
  7. IKOREL [Concomitant]
     Indication: ANGINA PECTORIS
     Dosage: 10 MG, QD
     Dates: start: 20130210
  8. MECIR [Concomitant]
  9. INEXIUM [Concomitant]

REACTIONS (5)
  - Coronary artery occlusion [Not Recovered/Not Resolved]
  - Epistaxis [Recovered/Resolved]
  - Anaemia [Recovered/Resolved]
  - Nasal septum deviation [Unknown]
  - Nasal obstruction [Unknown]
